FAERS Safety Report 12411037 (Version 4)
Quarter: 2016Q3

REPORT INFORMATION
  Report Type: Report from Study
  Country: US (occurrence: US)
  Receive Date: 20160527
  Receipt Date: 20160725
  Transmission Date: 20161109
  Serious: Yes (Death, Life-Threatening, Hospitalization)
  Sender: FDA-Public Use
  Company Number: US-JNJFOC-20160520509

PATIENT
  Age: 55 Year
  Sex: Female
  Weight: 62.4 kg

DRUGS (2)
  1. ETHANOL [Suspect]
     Active Substance: ALCOHOL
     Indication: PRODUCT USED FOR UNKNOWN INDICATION
     Route: 065
  2. TYLENOL [Suspect]
     Active Substance: ACETAMINOPHEN
     Indication: PRODUCT USED FOR UNKNOWN INDICATION
     Dosage: TOOK 100 TABLETS OF 650 MG IN A SUICIDE ATTEMPT
     Route: 048
     Dates: start: 20160520, end: 20160520

REACTIONS (11)
  - Brain injury [Fatal]
  - Coma [Fatal]
  - Intentional overdose [Fatal]
  - Completed suicide [Fatal]
  - Hepatic encephalopathy [Fatal]
  - Respiratory failure [Fatal]
  - Renal failure [Fatal]
  - Drug administration error [Fatal]
  - Acute hepatic failure [Fatal]
  - Hepatic necrosis [Fatal]
  - Brain oedema [Fatal]

NARRATIVE: CASE EVENT DATE: 2016
